FAERS Safety Report 24736420 (Version 1)
Quarter: 2024Q4

REPORT INFORMATION
  Report Type: Spontaneous
  Country: FR (occurrence: FR)
  Receive Date: 20241216
  Receipt Date: 20241216
  Transmission Date: 20250115
  Serious: Yes (Other)
  Sender: ABBVIE
  Company Number: None

PATIENT
  Age: 51 Year
  Sex: Male
  Weight: 80 kg

DRUGS (3)
  1. HUMIRA [Suspect]
     Active Substance: ADALIMUMAB
     Indication: Serpiginous choroiditis
     Dosage: FORM STRENGTH 40 MG
     Route: 058
     Dates: start: 20081101
  2. VALACYCLOVIR HYDROCHLORIDE [Concomitant]
     Active Substance: VALACYCLOVIR HYDROCHLORIDE
     Indication: Product used for unknown indication
  3. CANDESARTAN [Concomitant]
     Active Substance: CANDESARTAN
     Indication: Product used for unknown indication
     Dosage: SCORED TABLET

REACTIONS (10)
  - Vulval cancer [Not Recovered/Not Resolved]
  - Erectile dysfunction [Not Recovered/Not Resolved]
  - Diplopia [Not Recovered/Not Resolved]
  - Headache [Not Recovered/Not Resolved]
  - Scleritis [Not Recovered/Not Resolved]
  - Impaired healing [Not Recovered/Not Resolved]
  - Injection site erythema [Not Recovered/Not Resolved]
  - Tendonitis [Not Recovered/Not Resolved]
  - Sciatica [Not Recovered/Not Resolved]
  - Hypertension [Not Recovered/Not Resolved]

NARRATIVE: CASE EVENT DATE: 20081101
